FAERS Safety Report 4426710-8 (Version None)
Quarter: 2004Q3

REPORT INFORMATION
  Report Type: 
  Country: None (occurrence: None)
  Receive Date: 20040811
  Receipt Date: 20040727
  Transmission Date: 20050211
  Serious: Yes (Other)
  Sender: FDA-Public Use
  Company Number: USA040773779

PATIENT
  Sex: Female

DRUGS (1)
  1. PROZAC WEEKLY [Suspect]
     Dosage: 90 MG/2 WEEK
     Route: 048

REACTIONS (1)
  - UNEVALUABLE EVENT [None]
